FAERS Safety Report 8835417 (Version 1)
Quarter: 2012Q4

REPORT INFORMATION
  Report Type: 
  Country: IT (occurrence: IT)
  Receive Date: 20121011
  Receipt Date: 20121011
  Transmission Date: 20130627
  Serious: Yes (Death, Other)
  Sender: FDA-Public Use
  Company Number: PHHY2012IT089272

PATIENT
  Age: 71 Year
  Sex: Male

DRUGS (2)
  1. IMATINIB [Suspect]
     Indication: GASTROINTESTINAL STROMAL TUMOUR
     Dosage: 400 mg, per day
  2. IMATINIB [Suspect]
     Dosage: 800 mg, per day

REACTIONS (5)
  - Neoplasm progression [Fatal]
  - Malignant neoplasm progression [Fatal]
  - Metastasis [Unknown]
  - Neurotoxicity [Unknown]
  - Petechiae [Unknown]
